FAERS Safety Report 6439868-6 (Version None)
Quarter: 2009Q4

REPORT INFORMATION
  Report Type: 
  Country: None (occurrence: None)
  Receive Date: 20091113
  Receipt Date: 20091109
  Transmission Date: 20100525
  Serious: Yes (Hospitalization, Other)
  Sender: FDA-Public Use
  Company Number: BE-BRISTOL-MYERS SQUIBB COMPANY-14853824

PATIENT
  Age: 51 Year
  Sex: Male
  Weight: 64 kg

DRUGS (4)
  1. CETUXIMAB [Suspect]
     Indication: HEAD AND NECK CANCER
     Dosage: RECENT INF:21OCT09
     Route: 042
     Dates: start: 20090615
  2. CARBOPLATIN [Suspect]
     Indication: HEAD AND NECK CANCER
     Dosage: RECENT INF:21OCT09
     Route: 042
     Dates: start: 20090917
  3. RADIOTHERAPY [Suspect]
     Indication: HEAD AND NECK CANCER
     Dosage: 1 D.F=2 GY;RECENT DOSE:21OCT09 INTERRUPTED ON 23OCT,02NOV + 03NOV
     Dates: start: 20090917
  4. CONTRAMAL [Concomitant]
     Route: 048
     Dates: start: 20091013, end: 20091022

REACTIONS (2)
  - DYSPHAGIA [None]
  - WEIGHT DECREASED [None]
